FAERS Safety Report 7849871-7 (Version None)
Quarter: 2011Q4

REPORT INFORMATION
  Report Type: 
  Country: None (occurrence: None)
  Receive Date: 20111021
  Receipt Date: 20111011
  Transmission Date: 20120403
  Serious: Yes (Other)
  Sender: FDA-Public Use
  Company Number: 1041955

PATIENT
  Age: 1 Day
  Sex: Male

DRUGS (1)
  1. DEXTROSE 10% [Suspect]
     Indication: DEHYDRATION
     Dosage: INTRAVENOUS
     Route: 042
     Dates: start: 20110825

REACTIONS (4)
  - INCORRECT DRUG ADMINISTRATION RATE [None]
  - DEVICE COMPUTER ISSUE [None]
  - POOR VENOUS ACCESS [None]
  - BLOOD GLUCOSE DECREASED [None]
